FAERS Safety Report 7201852-2 (Version None)
Quarter: 2010Q4

REPORT INFORMATION
  Report Type: 
  Country: None (occurrence: None)
  Receive Date: 20101215
  Receipt Date: 20101201
  Transmission Date: 20110411
  Serious: Yes (Hospitalization)
  Sender: FDA-Public Use
  Company Number: JPI-P-013124

PATIENT
  Age: 67 Year
  Sex: Male
  Weight: 94.8018 kg

DRUGS (4)
  1. XYREM [Suspect]
     Indication: NARCOLEPSY
     Dosage: (2 IN 1 D),ORAL ; 9 GM (4.5 GM,2 IN 1 D),ORAL
     Route: 048
     Dates: end: 20101001
  2. XYREM [Suspect]
     Indication: NARCOLEPSY
     Dosage: (2 IN 1 D),ORAL ; 9 GM (4.5 GM,2 IN 1 D),ORAL
     Route: 048
     Dates: start: 20061201
  3. UNSPECIFIED CHOLESTEROL MEDICATION [Concomitant]
  4. UNSPECIFIED HIGH BLOOD PRESSURE MEDICATION [Concomitant]

REACTIONS (2)
  - ASTHENIA [None]
  - CHOLECYSTITIS INFECTIVE [None]
